FAERS Safety Report 9537888 (Version 2)
Quarter: 2013Q4

REPORT INFORMATION
  Report Type: Report from Study
  Country: JP (occurrence: JP)
  Receive Date: 20130919
  Receipt Date: 20131227
  Transmission Date: 20140711
  Serious: Yes (Hospitalization)
  Sender: FDA-Public Use
  Company Number: JP-MERCK-1309JPN006682

PATIENT
  Age: 76 Year
  Sex: Male

DRUGS (7)
  1. GLACTIV [Suspect]
     Indication: TYPE 2 DIABETES MELLITUS
     Dosage: (50 MG, ONCE A DAY) FREQUENCY QD
     Route: 048
     Dates: start: 20120208
  2. DAONIL [Concomitant]
  3. BASEN OD [Concomitant]
  4. NU-LOTAN TABLET 50 [Concomitant]
  5. HARNAL [Concomitant]
  6. AVOLVE [Concomitant]
  7. MEVARICH [Concomitant]

REACTIONS (1)
  - Pyelonephritis [Recovered/Resolved with Sequelae]
